FAERS Safety Report 23158867 (Version 1)
Quarter: 2023Q4

REPORT INFORMATION
  Report Type: Spontaneous
  Country: US (occurrence: None)
  Receive Date: 20231107
  Receipt Date: 20231107
  Transmission Date: 20240109
  Serious: No
  Sender: FDA-Public Use
  Company Number: None

PATIENT
  Age: 31 Year
  Sex: Male

DRUGS (1)
  1. DELSTRIGO [Suspect]
     Active Substance: DORAVIRINE\LAMIVUDINE\TENOFOVIR DISOPROXIL FUMARATE
     Dosage: OTHER QUANTITY : 100-300-300MG;?FREQUENCY : DAILY;?
     Route: 048

REACTIONS (1)
  - Ejaculation delayed [None]

NARRATIVE: CASE EVENT DATE: 20231107
